FAERS Safety Report 21310834 (Version 2)
Quarter: 2022Q4

REPORT INFORMATION
  Report Type: Spontaneous
  Country: US (occurrence: None)
  Receive Date: 20220909
  Receipt Date: 20221108
  Transmission Date: 20230112
  Serious: Yes (Death)
  Sender: FDA-Public Use
  Company Number: US-FARMAPROD-202208-1671

PATIENT
  Age: 89 Year
  Sex: Male

DRUGS (10)
  1. OXERVATE [Suspect]
     Active Substance: CENEGERMIN-BKBJ
     Indication: Neurotrophic keratopathy
     Route: 047
     Dates: start: 20220716
  2. ARTIFICIAL TEARS [Concomitant]
     Active Substance: GLYCERIN\HYPROMELLOSES\POLYETHYLENE GLYCOL 400
     Dosage: 0.3%-1%
  3. FINASTERIDE [Concomitant]
     Active Substance: FINASTERIDE
     Indication: Benign prostatic hyperplasia
     Dosage: DAILY
     Route: 048
     Dates: start: 20190422
  4. FUROSEMIDE [Concomitant]
     Active Substance: FUROSEMIDE
     Indication: Cardiac disorder
     Dosage: DAILY
     Route: 048
  5. MONTELUKAST SODIUM [Concomitant]
     Active Substance: MONTELUKAST SODIUM
     Indication: Asthma
     Route: 048
     Dates: start: 20190517
  6. CARVEDILOL [Concomitant]
     Active Substance: CARVEDILOL
  7. MIDODRINE HYDROCHLORIDE [Concomitant]
     Active Substance: MIDODRINE HYDROCHLORIDE
  8. POTASSIUM CHLORIDE [Concomitant]
     Active Substance: POTASSIUM CHLORIDE
  9. ELIQUIS [Concomitant]
     Active Substance: APIXABAN
  10. DILTIAZEM [Concomitant]
     Active Substance: DILTIAZEM
     Indication: Cardiac disorder
     Dosage: DAILY
     Route: 048
     Dates: start: 20190509

REACTIONS (1)
  - Death [Fatal]

NARRATIVE: CASE EVENT DATE: 20220824
